FAERS Safety Report 9177487 (Version 1)
Quarter: 2013Q1

REPORT INFORMATION
  Report Type: Spontaneous
  Country: US (occurrence: US)
  Receive Date: 20130321
  Receipt Date: 20130321
  Transmission Date: 20140127
  Serious: Yes (Other)
  Sender: FDA-Public Use
  Company Number: US-BAYER-2013-033221

PATIENT
  Age: 75 Year
  Sex: Female
  Weight: 58.05 kg

DRUGS (7)
  1. BAYER ASPIRIN REGIMEN ADULT LOW STRENGTH [Suspect]
     Indication: ISCHAEMIC HEART DISEASE PROPHYLAXIS
     Dosage: 1 DF, QD
     Route: 048
     Dates: start: 2007, end: 2012
  2. CITRACAL MAXIMUM [Concomitant]
  3. PROTONIX [Concomitant]
  4. FISH OIL [Concomitant]
  5. LUTEIN [Concomitant]
  6. CENTRUM [MINERALS NOS,VITAMINS NOS] [Concomitant]
  7. ALLEGRA [Concomitant]

REACTIONS (1)
  - Age-related macular degeneration [Not Recovered/Not Resolved]
